FAERS Safety Report 9271417 (Version 1)
Quarter: 2013Q2

REPORT INFORMATION
  Report Type: Spontaneous
  Country: FR (occurrence: FR)
  Receive Date: 20130506
  Receipt Date: 20130506
  Transmission Date: 20140414
  Serious: Yes (Hospitalization, Disabling)
  Sender: FDA-Public Use
  Company Number: FR-ROCHE-1221454

PATIENT
  Age: 49 Year
  Sex: Male

DRUGS (12)
  1. PEGASYS [Suspect]
     Indication: CHRONIC HEPATITIS C
     Route: 058
     Dates: start: 20090627, end: 20120128
  2. NORVIR [Suspect]
     Indication: CHRONIC HEPATITIS C
     Route: 048
     Dates: start: 20071016
  3. REYATAZ [Suspect]
     Indication: CHRONIC HEPATITIS C
     Route: 065
     Dates: start: 20110115
  4. TRUVADA [Suspect]
     Indication: CHRONIC HEPATITIS C
     Route: 065
     Dates: start: 20110115
  5. SOLUPRED (FRANCE) [Suspect]
     Indication: CHRONIC HEPATITIS C
     Route: 048
     Dates: start: 201105, end: 201105
  6. AUGMENTIN [Concomitant]
  7. EFFERALGAN [Concomitant]
  8. BI-PROFENID [Concomitant]
  9. DOLIPRANE [Concomitant]
  10. SKENAN [Concomitant]
  11. ACTISKENAN [Concomitant]
  12. INEXIUM [Concomitant]

REACTIONS (1)
  - Osteonecrosis [Not Recovered/Not Resolved]
